FAERS Safety Report 8270656-4 (Version None)
Quarter: 2012Q2

REPORT INFORMATION
  Report Type: 
  Country: None (occurrence: None)
  Receive Date: 20120406
  Receipt Date: 20120322
  Transmission Date: 20120825
  Serious: Yes (Other)
  Sender: FDA-Public Use
  Company Number: THQ2012A02196

PATIENT
  Age: 52 Year
  Sex: Male

DRUGS (3)
  1. LOSARTAN [Concomitant]
  2. METFORMIN HCL [Concomitant]
  3. COMPETACT (PIOGLITAZONE HYDROCHLORIDE, METFORMIN HYDROCHLORIDE) 15 [Suspect]
     Indication: DIABETES MELLITUS
     Dosage: PIOGLITAZONE HYDROCHLORIDE 15 MG/METFORMIN HYDROCHLORIDE 850 MG, 1 D), PER ORAL
     Route: 048

REACTIONS (2)
  - PERICARDITIS [None]
  - SUPRAVENTRICULAR TACHYCARDIA [None]
